FAERS Safety Report 4294825-3 (Version None)
Quarter: 2004Q1

REPORT INFORMATION
  Report Type: 
  Country: None (occurrence: None)
  Receive Date: 20040216
  Receipt Date: 20030113
  Transmission Date: 20041129
  Serious: No
  Sender: FDA-Public Use
  Company Number: US-GLAXOSMITHKLINE-A0392144A

PATIENT
  Age: 31 Year
  Sex: Female

DRUGS (2)
  1. LAMICTAL [Suspect]
     Dosage: 250MG TWICE PER DAY
     Route: 048
  2. TEGRETOL [Concomitant]

REACTIONS (2)
  - ANXIETY [None]
  - INSOMNIA [None]
